FAERS Safety Report 18965169 (Version 1)
Quarter: 2021Q1

REPORT INFORMATION
  Report Type: Spontaneous
  Country: CN (occurrence: CN)
  Receive Date: 20210303
  Receipt Date: 20210303
  Transmission Date: 20210420
  Serious: Yes (Other)
  Sender: FDA-Public Use
  Company Number: CN-PFIZER INC-2021187241

PATIENT
  Age: 6 Year
  Sex: Female
  Weight: 21.5 kg

DRUGS (5)
  1. ZITHROMAX [Suspect]
     Active Substance: AZITHROMYCIN DIHYDRATE
     Indication: ANTI-INFECTIVE THERAPY
     Dosage: 200.000 MG, 1X/DAY
     Route: 048
     Dates: start: 20210201, end: 20210202
  2. ATROVENT [Suspect]
     Active Substance: IPRATROPIUM BROMIDE
     Indication: ASTHMA
     Dosage: 250 UG, 2X/DAY
     Route: 055
     Dates: start: 20210129, end: 20210202
  3. ZITHROMAX [Suspect]
     Active Substance: AZITHROMYCIN DIHYDRATE
     Indication: ANTI-INFECTIVE THERAPY
     Dosage: 0.200 G, 1X/DAY
     Route: 041
     Dates: start: 20210129, end: 20210131
  4. PULMICORT TURBUHALER [Suspect]
     Active Substance: BUDESONIDE
     Indication: ANTIINFLAMMATORY THERAPY
     Dosage: 1.000 MG, 2X/DAY
     Route: 055
     Dates: start: 20210129, end: 20210202
  5. GLUCOSE [Concomitant]
     Active Substance: DEXTROSE
     Indication: VEHICLE SOLUTION USE
     Dosage: 200.000 ML, 1X/DAY
     Route: 041
     Dates: start: 20210129, end: 20210131

REACTIONS (5)
  - Urticaria [Recovering/Resolving]
  - Rash erythematous [Recovering/Resolving]
  - Rash pruritic [Recovering/Resolving]
  - Eyelid rash [Recovering/Resolving]
  - Off label use [Unknown]

NARRATIVE: CASE EVENT DATE: 20210129
